FAERS Safety Report 4331675-3 (Version None)
Quarter: 2004Q1

REPORT INFORMATION
  Report Type: 
  Country: None (occurrence: None)
  Receive Date: 20040330
  Receipt Date: 20040130
  Transmission Date: 20041129
  Serious: Yes (Death, Life-Threatening, Hospitalization, Other)
  Sender: FDA-Public Use
  Company Number: WAES 0402USA00116

PATIENT
  Age: 66 Year
  Sex: Female

DRUGS (5)
  1. ZOCOR [Suspect]
     Indication: HYPERLIPIDAEMIA
     Dosage: 5 MG/DAILY
     Route: 048
     Dates: start: 19920324
  2. BISOPROLOL FUMURATE [Concomitant]
  3. DILTIAZEM HYDROCHLORIDE [Concomitant]
  4. GLYBURIDE [Concomitant]
  5. SPIRONOLACTONE [Concomitant]

REACTIONS (5)
  - ANGINA PECTORIS [None]
  - ANGINA UNSTABLE [None]
  - ARRHYTHMIA [None]
  - CORONARY ARTERY DISEASE [None]
  - CORONARY ARTERY SURGERY [None]
